FAERS Safety Report 19627154 (Version 1)
Quarter: 2021Q3

REPORT INFORMATION
  Report Type: Spontaneous
  Country: US (occurrence: US)
  Receive Date: 20210729
  Receipt Date: 20210729
  Transmission Date: 20211014
  Serious: No
  Sender: FDA-Public Use
  Company Number: US-TAKEDA-2021TUS045881

PATIENT
  Sex: Female
  Weight: 52 kg

DRUGS (1)
  1. VYVANSE [Suspect]
     Active Substance: LISDEXAMFETAMINE DIMESYLATE
     Indication: PRODUCT USED FOR UNKNOWN INDICATION
     Dosage: 40 MILLIGRAM
     Route: 048

REACTIONS (8)
  - Inappropriate schedule of product administration [Unknown]
  - Weight decreased [Unknown]
  - Vomiting [Unknown]
  - Drug ineffective [Unknown]
  - Decreased appetite [Unknown]
  - Anxiety [Unknown]
  - Irritability [Unknown]
  - Disturbance in attention [Unknown]
